FAERS Safety Report 6539841-3 (Version None)
Quarter: 2010Q1

REPORT INFORMATION
  Report Type: 
  Country: None (occurrence: None)
  Receive Date: 20100111
  Receipt Date: 20100104
  Transmission Date: 20100710
  Serious: Yes (Death, Hospitalization)
  Sender: FDA-Public Use
  Company Number: 2010US000014

PATIENT
  Age: 14 Month
  Sex: Female
  Weight: 11 kg

DRUGS (5)
  1. PROGRAF [Suspect]
     Indication: LIVER AND SMALL INTESTINE TRANSPLANT
     Dosage: 1.5 MG, BID; 3 MG, BID; 1.5 MG, BID
  2. METHYLPREDNISOLONE [Suspect]
     Indication: LIVER AND SMALL INTESTINE TRANSPLANT
     Dosage: 0.6 MG, UID/QD; 2 MG, UID/QD, IV NOS; 8 MG, BID
     Route: 042
  3. IMMUNE GLOBULIN (IMMUNOGLOBULIN) [Concomitant]
  4. GANCICLOVIR [Concomitant]
  5. GANCICLOVIR [Concomitant]

REACTIONS (4)
  - EPSTEIN-BARR VIRUS ASSOCIATED LYMPHOPROLIFERATIVE DISORDER [None]
  - MULTI-ORGAN FAILURE [None]
  - OFF LABEL USE [None]
  - PLASMABLASTIC LYMPHOMA [None]
